FAERS Safety Report 25903032 (Version 1)
Quarter: 2025Q4

REPORT INFORMATION
  Report Type: Spontaneous
  Country: US (occurrence: US)
  Receive Date: 20251009
  Receipt Date: 20251009
  Transmission Date: 20260117
  Serious: No
  Sender: VERTEX
  Company Number: US-VERTEX PHARMACEUTICALS-2025-016363

PATIENT
  Age: 13 Year
  Sex: Male

DRUGS (1)
  1. CASGEVY [Suspect]
     Active Substance: EXAGAMGLOGENE AUTOTEMCEL
     Indication: Product used for unknown indication
     Dosage: UNKNOWN DOSAGE REGIMEN
     Route: 042

REACTIONS (2)
  - Product preparation issue [Unknown]
  - Emotional distress [Unknown]
